FAERS Safety Report 13965059 (Version 2)
Quarter: 2017Q4

REPORT INFORMATION
  Report Type: Spontaneous
  Country: IT (occurrence: IT)
  Receive Date: 20170913
  Receipt Date: 20171111
  Transmission Date: 20180320
  Serious: Yes (Hospitalization)
  Sender: FDA-Public Use
  Company Number: IT-TEVA-805217ACC

PATIENT
  Age: 69 Year
  Sex: Female

DRUGS (8)
  1. TRITTICO - 50 MG COMPRESSE RIVESTITE CON FILM [Concomitant]
     Active Substance: TRAZODONE HYDROCHLORIDE
     Indication: PRODUCT USED FOR UNKNOWN INDICATION
     Dosage: 1 DF
  2. OLANZAPINE. [Concomitant]
     Active Substance: OLANZAPINE
     Indication: PRODUCT USED FOR UNKNOWN INDICATION
  3. LENDORMIN - 0,25 MG COMPRESSE - BOEHRINGER INGELHEIM ITALIA S.P.A. [Interacting]
     Active Substance: BROTIZOLAM
     Indication: DEPRESSION
     Dosage: 1 DOSAGE FORMS DAILY;
     Dates: start: 20161103, end: 20161214
  4. ALPRAZOLAM. [Suspect]
     Active Substance: ALPRAZOLAM
     Indication: DEPRESSION
     Dosage: 15 GTT DAILY;
     Dates: start: 20161103, end: 20161214
  5. PAROXETINE. [Concomitant]
     Active Substance: PAROXETINE
     Indication: PRODUCT USED FOR UNKNOWN INDICATION
     Dosage: 40 MG
  6. FULCRO - 200 MG CAPSULE RIGIDE [Concomitant]
     Active Substance: FENOFIBRATE
     Indication: PRODUCT USED FOR UNKNOWN INDICATION
  7. OMEPRAZOLE. [Concomitant]
     Active Substance: OMEPRAZOLE
     Indication: PRODUCT USED FOR UNKNOWN INDICATION
     Dosage: 40 MG
  8. FRONTAL - 0,50MG COMPRESSE - BGP PRODUCTS S.R.L. [Interacting]
     Active Substance: ALPRAZOLAM
     Indication: DEPRESSION
     Dosage: 3 DOSAGE FORMS DAILY;
     Dates: start: 20161018, end: 20161214

REACTIONS (3)
  - Hypokinesia [Recovered/Resolved]
  - Drug interaction [Recovered/Resolved]
  - Bradyphrenia [Recovered/Resolved]

NARRATIVE: CASE EVENT DATE: 20161214
